FAERS Safety Report 25788036 (Version 2)
Quarter: 2025Q4

REPORT INFORMATION
  Report Type: Report from Study
  Country: EU (occurrence: EU)
  Receive Date: 20250910
  Receipt Date: 20251009
  Transmission Date: 20260118
  Serious: Yes (Other)
  Sender: ABBVIE
  Company Number: EU-ABBVIE-6452049

PATIENT
  Age: 58 Year
  Sex: Female
  Weight: 80 kg

DRUGS (2)
  1. TELISOTUZUMAB VEDOTIN [Suspect]
     Active Substance: TELISOTUZUMAB VEDOTIN
     Indication: Lung adenocarcinoma
     Dosage: ON DAY 1 OF EACH 14-DAY CYCLE UNTIL THE DISEASE PROGRESSES
     Route: 042
     Dates: start: 20250515, end: 20250704
  2. TELISOTUZUMAB VEDOTIN [Suspect]
     Active Substance: TELISOTUZUMAB VEDOTIN
     Indication: Lung adenocarcinoma
     Route: 042
     Dates: start: 20250804

REACTIONS (2)
  - Therapeutic product effect incomplete [Unknown]
  - Interstitial lung disease [Recovered/Resolved]

NARRATIVE: CASE EVENT DATE: 20250101
